FAERS Safety Report 26143948 (Version 1)
Quarter: 2025Q4

REPORT INFORMATION
  Report Type: Spontaneous
  Country: US (occurrence: US)
  Receive Date: 20251211
  Receipt Date: 20251211
  Transmission Date: 20260118
  Serious: No
  Sender: COSETTE PHARMACEUTICALS INC
  Company Number: US-COSETTE-CP2025US001159

PATIENT
  Age: 72 Year
  Sex: Female
  Weight: 125 kg

DRUGS (1)
  1. TAZAROTENE [Suspect]
     Active Substance: TAZAROTENE
     Indication: Acne
     Route: 061
     Dates: start: 20251115, end: 20251118

REACTIONS (4)
  - Pruritus [Recovered/Resolved]
  - Skin exfoliation [Recovered/Resolved]
  - Dry skin [Not Recovered/Not Resolved]
  - Product use in unapproved indication [Unknown]

NARRATIVE: CASE EVENT DATE: 20251115
